FAERS Safety Report 7657383-9 (Version None)
Quarter: 2011Q3

REPORT INFORMATION
  Report Type: 
  Country: None (occurrence: None)
  Receive Date: 20110804
  Receipt Date: 20110801
  Transmission Date: 20111222
  Serious: Yes (Death, Other)
  Sender: FDA-Public Use
  Company Number: PHHY2011US19502

PATIENT
  Sex: Male

DRUGS (1)
  1. EXJADE [Suspect]
     Route: 048

REACTIONS (5)
  - ACUTE LEUKAEMIA [None]
  - MYELODYSPLASTIC SYNDROME [None]
  - HAEMOPTYSIS [None]
  - EPISTAXIS [None]
  - HAEMORRHAGE [None]
